FAERS Safety Report 15745482 (Version 4)
Quarter: 2019Q2

REPORT INFORMATION
  Report Type: Spontaneous
  Country: DE (occurrence: DE)
  Receive Date: 20181220
  Receipt Date: 20190510
  Transmission Date: 20190711
  Serious: Yes (Death, Hospitalization, Other)
  Sender: FDA-Public Use
  Company Number: DE-SAKK-2018SA342501AA

PATIENT
  Age: 85 Year
  Sex: Female

DRUGS (6)
  1. DUPIXENT [Suspect]
     Active Substance: DUPILUMAB
     Indication: DERMATITIS ATOPIC
     Dosage: UNK
     Route: 058
     Dates: start: 20180131, end: 201812
  2. MARCUMAR [Concomitant]
     Active Substance: PHENPROCOUMON
     Dosage: 3 MG
  3. AMIODARONE [Concomitant]
     Active Substance: AMIODARONE
     Dosage: 200 MG, QD
  4. TORASEMID [Concomitant]
     Active Substance: TORSEMIDE
     Dosage: 0.5 DF
  5. SPIRONOLACTON [Concomitant]
     Active Substance: SPIRONOLACTONE
     Dosage: 0.25 DF
  6. CORIFEO [Concomitant]
     Dosage: 0.5 DF

REACTIONS (12)
  - Pneumonia [Not Recovered/Not Resolved]
  - Pelvic fracture [Unknown]
  - Staphylococcal sepsis [Unknown]
  - Cardiorenal syndrome [Unknown]
  - Abdominal hernia [Unknown]
  - Fall [Unknown]
  - Contusion [Unknown]
  - Respiratory failure [Fatal]
  - Musculoskeletal pain [Unknown]
  - Acute kidney injury [Unknown]
  - Pulmonary fibrosis [Fatal]
  - Multiple organ dysfunction syndrome [Unknown]

NARRATIVE: CASE EVENT DATE: 20181126
